FAERS Safety Report 8112775-9 (Version None)
Quarter: 2012Q1

REPORT INFORMATION
  Report Type: 
  Country: None (occurrence: None)
  Receive Date: 20120131
  Receipt Date: 20120117
  Transmission Date: 20120608
  Serious: Yes (Life-Threatening, Hospitalization, Other)
  Sender: FDA-Public Use
  Company Number: 2012MA000789

PATIENT
  Sex: Male

DRUGS (7)
  1. TEQUIN [Concomitant]
  2. ANAPROX [Concomitant]
  3. UNASYN [Concomitant]
  4. DITROPAN [Concomitant]
  5. ATENOLOL [Concomitant]
  6. DIGOXIN [Suspect]
     Dosage: 250 MCG;PO
     Route: 048
     Dates: start: 20050724, end: 20080429
  7. CIPROFLOXACIN [Concomitant]

REACTIONS (30)
  - DEHYDRATION [None]
  - DIVERTICULAR FISTULA [None]
  - VESICAL FISTULA [None]
  - DIVERTICULITIS [None]
  - ILEAL FISTULA [None]
  - ATRIOVENTRICULAR BLOCK SECOND DEGREE [None]
  - IMPAIRED SELF-CARE [None]
  - ARRHYTHMIA [None]
  - MALNUTRITION [None]
  - URINARY TRACT INFECTION [None]
  - CACHEXIA [None]
  - PNEUMATURIA [None]
  - IMPAIRED HEALING [None]
  - ANURIA [None]
  - METABOLIC ACIDOSIS [None]
  - INTESTINAL OBSTRUCTION [None]
  - CHEST PAIN [None]
  - SUPRAVENTRICULAR EXTRASYSTOLES [None]
  - ENTEROVESICAL FISTULA [None]
  - UROSEPSIS [None]
  - HAEMOGLOBIN DECREASED [None]
  - LUNG HYPERINFLATION [None]
  - DISEASE RECURRENCE [None]
  - PROSTATOMEGALY [None]
  - DIVERTICULUM [None]
  - DYSSTASIA [None]
  - ABASIA [None]
  - URINARY FISTULA [None]
  - RENAL FAILURE [None]
  - TOXICITY TO VARIOUS AGENTS [None]
